FAERS Safety Report 26036349 (Version 1)
Quarter: 2025Q4

REPORT INFORMATION
  Report Type: Spontaneous
  Country: EU (occurrence: EU)
  Receive Date: 20251112
  Receipt Date: 20251112
  Transmission Date: 20260118
  Serious: Yes (Other)
  Sender: PFIZER
  Company Number: None

PATIENT
  Age: 1 Day
  Sex: Male
  Weight: 3 kg

DRUGS (1)
  1. PROSTIN [Suspect]
     Active Substance: ALPROSTADIL
     Indication: Heart disease congenital
     Dosage: 50 NG/KG/MIN
     Route: 042
     Dates: start: 20251031

REACTIONS (1)
  - Fever neonatal [Recovered/Resolved]

NARRATIVE: CASE EVENT DATE: 20251031
